FAERS Safety Report 10086102 (Version 3)
Quarter: 2014Q2

REPORT INFORMATION
  Report Type: Spontaneous
  Country: PL (occurrence: None)
  Receive Date: 20140416
  Receipt Date: 20140506
  Transmission Date: 20141212
  Serious: Yes (Hospitalization, Other)
  Sender: FDA-Public Use
  Company Number: AUR-APL-2014-04604

PATIENT
  Age: 77 Year
  Sex: Female

DRUGS (3)
  1. METFORMIN (METFORMIN) [Suspect]
     Indication: DIABETES MELLITUS
  2. INSULIN [Concomitant]
  3. ASPIRIN(ACETYL SALICYLIC ACID) [Concomitant]

REACTIONS (18)
  - Renal impairment [None]
  - Lactic acidosis [None]
  - Substance abuse [None]
  - Anuria [None]
  - Dehydration [None]
  - Blood glucose increased [None]
  - Haemodialysis [None]
  - Diarrhoea [None]
  - Vomiting [None]
  - Pain [None]
  - Malaise [None]
  - Hypovolaemia [None]
  - Dyspnoea [None]
  - Hypotension [None]
  - Bradycardia [None]
  - Hypothermia [None]
  - Toxicity to various agents [None]
  - General physical health deterioration [None]
